FAERS Safety Report 11393031 (Version 1)
Quarter: 2015Q3

REPORT INFORMATION
  Report Type: Spontaneous
  Country: US (occurrence: US)
  Receive Date: 20150818
  Receipt Date: 20150818
  Transmission Date: 20151125
  Serious: No
  Sender: FDA-Public Use
  Company Number: US-BAYER-2015-401607

PATIENT
  Age: 64 Year
  Sex: Male
  Weight: 90.25 kg

DRUGS (2)
  1. NIACIN. [Concomitant]
     Active Substance: NIACIN
  2. ALEVE [Suspect]
     Active Substance: NAPROXEN SODIUM
     Indication: TOOTHACHE
     Dosage: 1 DF, PRN
     Route: 048
     Dates: start: 2014

REACTIONS (2)
  - Headache [Recovered/Resolved]
  - Pain [Not Recovered/Not Resolved]

NARRATIVE: CASE EVENT DATE: 20150811
